FAERS Safety Report 7269373-9 (Version None)
Quarter: 2011Q1

REPORT INFORMATION
  Report Type: 
  Country: None (occurrence: None)
  Receive Date: 20110202
  Receipt Date: 20110124
  Transmission Date: 20110831
  Serious: Yes (Death, Hospitalization, Other)
  Sender: FDA-Public Use
  Company Number: NL-CELGENEUS-114-21880-10050903

PATIENT
  Sex: Female

DRUGS (2)
  1. REVLIMID [Suspect]
     Route: 048
     Dates: start: 20090518, end: 20100414
  2. BLOOD TRANSFUSION [Concomitant]
     Route: 051

REACTIONS (7)
  - THROMBOCYTOPENIA [None]
  - PYREXIA [None]
  - ORAL PAIN [None]
  - MYELODYSPLASTIC SYNDROME [None]
  - RESPIRATORY TRACT INFECTION FUNGAL [None]
  - LEUKOPENIA [None]
  - EMBOLISM ARTERIAL [None]
